FAERS Safety Report 17381482 (Version 1)
Quarter: 2020Q1

REPORT INFORMATION
  Report Type: Spontaneous
  Country: US (occurrence: US)
  Receive Date: 20200206
  Receipt Date: 20200206
  Transmission Date: 20200409
  Serious: Yes (Other)
  Sender: FDA-Public Use
  Company Number: US-ABBVIE-19K-163-2796430-00

PATIENT
  Sex: Female

DRUGS (6)
  1. PREDNISONE. [Concomitant]
     Active Substance: PREDNISONE
     Indication: PRODUCT USED FOR UNKNOWN INDICATION
     Route: 048
     Dates: start: 20130930, end: 20140313
  2. TRIAMCINOLONE HEXACETONIDE [Concomitant]
     Active Substance: TRIAMCINOLONE HEXACETONIDE
     Indication: PRODUCT USED FOR UNKNOWN INDICATION
     Dosage: 20 MG TOTAL
     Route: 014
  3. HUMIRA [Suspect]
     Active Substance: ADALIMUMAB
     Indication: RHEUMATOID ARTHRITIS
     Route: 058
  4. METHOTREXATE. [Suspect]
     Active Substance: METHOTREXATE
     Indication: RHEUMATOID ARTHRITIS
     Route: 048
     Dates: end: 200703
  5. HUMIRA [Suspect]
     Active Substance: ADALIMUMAB
     Route: 058
     Dates: start: 20130930, end: 20131007
  6. OMEPRAZOLE. [Concomitant]
     Active Substance: OMEPRAZOLE
     Indication: PRODUCT USED FOR UNKNOWN INDICATION
     Route: 048
     Dates: start: 20130930, end: 20150220

REACTIONS (15)
  - Weight decreased [Recovered/Resolved]
  - Loss of personal independence in daily activities [Unknown]
  - Therapeutic product effect incomplete [Unknown]
  - Drug intolerance [Unknown]
  - Nausea [Recovered/Resolved]
  - Gait disturbance [Unknown]
  - Physical examination abnormal [Unknown]
  - Adverse drug reaction [Unknown]
  - Joint range of motion decreased [Unknown]
  - Pain [Unknown]
  - Rheumatoid arthritis [Unknown]
  - Arthrodesis [Unknown]
  - Joint injury [Unknown]
  - Knee arthroplasty [Unknown]
  - Drug specific antibody present [Unknown]

NARRATIVE: CASE EVENT DATE: 201703
